FAERS Safety Report 8463561-1 (Version None)
Quarter: 2012Q2

REPORT INFORMATION
  Report Type: 
  Country: None (occurrence: None)
  Receive Date: 20120625
  Receipt Date: 20120620
  Transmission Date: 20120825
  Serious: No
  Sender: FDA-Public Use
  Company Number: JP-PFIZER INC-2012088445

PATIENT
  Age: 55 Year
  Sex: Female

DRUGS (2)
  1. AROMASIN [Suspect]
     Indication: BREAST CANCER
     Dosage: 25 MG, 1X/DAY
     Route: 048
     Dates: start: 20120201
  2. AMLODIPINE [Concomitant]

REACTIONS (1)
  - NO ADVERSE EVENT [None]
